FAERS Safety Report 5760965-2 (Version None)
Quarter: 2008Q2

REPORT INFORMATION
  Report Type: 
  Country: None (occurrence: None)
  Receive Date: 20080606
  Receipt Date: 20080303
  Transmission Date: 20081010
  Serious: No
  Sender: FDA-Public Use
  Company Number: US-ASTRAZENECA-2008UW04328

PATIENT
  Age: 40 Year
  Sex: Female

DRUGS (1)
  1. PRILOSEC [Suspect]
     Route: 048

REACTIONS (1)
  - ILL-DEFINED DISORDER [None]
